FAERS Safety Report 12322482 (Version 2)
Quarter: 2016Q2

REPORT INFORMATION
  Report Type: Report from Study
  Country: US (occurrence: US)
  Receive Date: 20160502
  Receipt Date: 20160504
  Transmission Date: 20160815
  Serious: Yes (Hospitalization)
  Sender: FDA-Public Use
  Company Number: US-ROCHE-1744702

PATIENT
  Age: 37 Year
  Sex: Female
  Weight: 77.1 kg

DRUGS (7)
  1. PERTUZUMAB [Suspect]
     Active Substance: PERTUZUMAB
     Indication: BREAST CANCER
     Dosage: LOADING DOSE, 60 MIN ON DAY 1
     Route: 042
     Dates: start: 20160215
  2. TRASTUZUMAB [Suspect]
     Active Substance: TRASTUZUMAB
     Route: 042
  3. DOCETAXEL. [Suspect]
     Active Substance: DOCETAXEL
     Indication: BREAST CANCER
     Dosage: OVER 60 MIN ON DAY 1?DATE OF LAST DOSE RECEIVED PRIOR TO SAE ON 31/MAR/2016.
     Route: 042
     Dates: start: 20160215
  4. TRASTUZUMAB [Suspect]
     Active Substance: TRASTUZUMAB
     Indication: BREAST CANCER
     Dosage: LOADING DOSE, 30-60 MINUTES ON DAY 1
     Route: 042
     Dates: start: 20160215
  5. TRASTUZUMAB [Suspect]
     Active Substance: TRASTUZUMAB
     Dosage: DATE OF LAST DOSE RECEIVED PRIOR TO SAE ON 31/MAR/2016
     Route: 042
  6. PERTUZUMAB [Suspect]
     Active Substance: PERTUZUMAB
     Dosage: MAINTAINANCE DOSE, 30-60 MIN ON DAY 1?DATE OF LAST DOSE RECEIVED PRIOR TO SAE ON 31/MAR/2016
     Route: 042
  7. CARBOPLATIN. [Suspect]
     Active Substance: CARBOPLATIN
     Indication: BREAST CANCER
     Dosage: AUC-6 6MG/ML MIN OVER 30-60 MIN ON DAY 1?DATE OF LAST DOSE PRIOR TO SAE 0N 31/MAR/2016.
     Route: 042
     Dates: start: 20160215

REACTIONS (2)
  - Dehydration [Recovering/Resolving]
  - Dizziness [Recovering/Resolving]

NARRATIVE: CASE EVENT DATE: 20160405
